FAERS Safety Report 4519132-2 (Version None)
Quarter: 2004Q4

REPORT INFORMATION
  Report Type: 
  Country: None (occurrence: None)
  Receive Date: 20041206
  Receipt Date: 20040816
  Transmission Date: 20050328
  Serious: Yes (Death, Hospitalization, Other)
  Sender: FDA-Public Use
  Company Number: JP-BRISTOL-MYERS SQUIBB COMPANY-12672713

PATIENT
  Age: 67 Year
  Sex: Male

DRUGS (4)
  1. TAXOL [Suspect]
     Indication: LUNG ADENOCARCINOMA
     Route: 042
     Dates: start: 20040809, end: 20040809
  2. PARAPLATIN [Suspect]
     Indication: LUNG ADENOCARCINOMA
     Route: 042
     Dates: start: 20040809, end: 20040809
  3. SODIUM ALGINATE [Concomitant]
     Route: 048
     Dates: end: 20040814
  4. HALOPERIDOL [Concomitant]
     Route: 048
     Dates: end: 20040814

REACTIONS (9)
  - ANOREXIA [None]
  - BLOOD PRESSURE SYSTOLIC DECREASED [None]
  - DISSEMINATED INTRAVASCULAR COAGULATION [None]
  - FEELING COLD [None]
  - GENERAL PHYSICAL HEALTH DETERIORATION [None]
  - HEPATIC FAILURE [None]
  - MALAISE [None]
  - RENAL IMPAIRMENT [None]
  - THROMBOCYTOPENIA [None]
